FAERS Safety Report 4489024-6 (Version None)
Quarter: 2004Q4

REPORT INFORMATION
  Report Type: 
  Country: None (occurrence: None)
  Receive Date: 20041029
  Receipt Date: 20041021
  Transmission Date: 20050328
  Serious: Yes (Life-Threatening, Hospitalization)
  Sender: FDA-Public Use
  Company Number: US-MERCK-0410USA03359

PATIENT
  Age: 27 Year
  Sex: Male

DRUGS (2)
  1. NOROXIN [Suspect]
     Route: 048
     Dates: start: 20040701, end: 20041001
  2. [THERAPY UNSPECIFIED] [Concomitant]
     Route: 065

REACTIONS (2)
  - CAPILLARY DISORDER [None]
  - PULMONARY ALVEOLAR HAEMORRHAGE [None]
